FAERS Safety Report 8927381 (Version 1)
Quarter: 2012Q4

REPORT INFORMATION
  Report Type: 
  Country: GB (occurrence: GB)
  Receive Date: 20121127
  Receipt Date: 20121127
  Transmission Date: 20130627
  Serious: Yes (Other)
  Sender: FDA-Public Use
  Company Number: GB-TEVA-371657ISR

PATIENT
  Age: 82 Year
  Sex: Female

DRUGS (5)
  1. LOPERAMIDE [Suspect]
     Dosage: Take 2 immediately then 1 when required
     Route: 048
  2. COZAAR [Concomitant]
  3. LERCANIDIPINE [Concomitant]
  4. FYBOGEL [Concomitant]
  5. WARFARIN [Concomitant]

REACTIONS (1)
  - International normalised ratio increased [Recovered/Resolved]
